FAERS Safety Report 14925073 (Version 2)
Quarter: 2019Q2

REPORT INFORMATION
  Report Type: Spontaneous
  Country: US (occurrence: US)
  Receive Date: 20180522
  Receipt Date: 20190508
  Transmission Date: 20190711
  Serious: No
  Sender: FDA-Public Use
  Company Number: US-NOVOPROD-587960

PATIENT
  Age: 62 Year
  Sex: Female

DRUGS (1)
  1. NORDITROPIN [Suspect]
     Active Substance: SOMATROPIN
     Indication: GROWTH HORMONE DEFICIENCY
     Dosage: 1.5 MG, UNK
     Route: 058
     Dates: start: 201609

REACTIONS (4)
  - Unevaluable event [Unknown]
  - Swelling face [Not Recovered/Not Resolved]
  - Breast enlargement [Not Recovered/Not Resolved]
  - Goitre [Unknown]

NARRATIVE: CASE EVENT DATE: 2017
